FAERS Safety Report 5921595-2 (Version None)
Quarter: 2008Q3

REPORT INFORMATION
  Report Type: 
  Country: None (occurrence: None)
  Receive Date: 20080909
  Receipt Date: 20080102
  Transmission Date: 20090109
  Serious: Yes (Life-Threatening, Other)
  Sender: FDA-Public Use
  Company Number: 163-20785-07061073

PATIENT
  Age: 72 Year
  Sex: Male

DRUGS (4)
  1. THALOMID [Suspect]
     Indication: MULTIPLE MYELOMA
     Dosage: 200 MG, QD, ORAL
     Route: 048
     Dates: start: 20050222, end: 20050101
  2. DECADRON [Suspect]
     Indication: DRUG USE FOR UNKNOWN INDICATION
     Dates: start: 20050501, end: 20060601
  3. ERYTHROPOETIN/DARBEPOETIN ALFA) [Concomitant]
  4. WARFARIN SODIUM [Concomitant]

REACTIONS (2)
  - HYPERTENSION [None]
  - PULMONARY EMBOLISM [None]
